FAERS Safety Report 7558141-6 (Version None)
Quarter: 2011Q2

REPORT INFORMATION
  Report Type: 
  Country: None (occurrence: None)
  Receive Date: 20110620
  Receipt Date: 20110615
  Transmission Date: 20111010
  Serious: Yes (Other)
  Sender: FDA-Public Use
  Company Number: TR-PFIZER INC-2011130654

PATIENT

DRUGS (2)
  1. NEURONTIN [Suspect]
  2. PARAFON [Concomitant]

REACTIONS (1)
  - DELIRIUM [None]
